FAERS Safety Report 8117044-9 (Version None)
Quarter: 2012Q1

REPORT INFORMATION
  Report Type: 
  Country: None (occurrence: None)
  Receive Date: 20120206
  Receipt Date: 20120202
  Transmission Date: 20120608
  Serious: Yes (Hospitalization, Other)
  Sender: FDA-Public Use
  Company Number: US-PFIZER INC-2012029644

PATIENT
  Sex: Female
  Weight: 83.9 kg

DRUGS (4)
  1. PRILOSEC [Concomitant]
     Indication: HERNIA
     Dosage: UNK
  2. CIPROFLOXACIN [Concomitant]
     Dosage: UNK
  3. CELEBREX [Suspect]
     Indication: OSTEOARTHRITIS
     Dosage: 100 MG, 1X/DAY
     Route: 048
     Dates: start: 20010101
  4. PAXIL [Concomitant]
     Dosage: UNK

REACTIONS (4)
  - ATRIAL FIBRILLATION [None]
  - SPINAL LAMINECTOMY [None]
  - SPINAL CORD OPERATION [None]
  - DRUG INEFFECTIVE [None]
